FAERS Safety Report 6249548-8 (Version None)
Quarter: 2009Q2

REPORT INFORMATION
  Report Type: 
  Country: None (occurrence: None)
  Receive Date: 20090629
  Receipt Date: 20090622
  Transmission Date: 20091009
  Serious: Yes (Hospitalization)
  Sender: FDA-Public Use
  Company Number: US-ELI_LILLY_AND_COMPANY-US200905001072

PATIENT
  Sex: Female

DRUGS (4)
  1. HUMULIN R [Suspect]
     Dosage: 30 U, UNK
  2. HUMULIN R [Suspect]
     Dosage: 25 U, EACH MORNING
  3. HUMULIN R [Suspect]
     Dosage: 25 U, EACH EVENING
  4. HUMULIN R [Suspect]
     Dosage: 30 U, UNK

REACTIONS (6)
  - DIABETES MELLITUS INADEQUATE CONTROL [None]
  - DRUG PRESCRIBING ERROR [None]
  - HOSPITALISATION [None]
  - HYPERHIDROSIS [None]
  - HYPOGLYCAEMIA [None]
  - TREMOR [None]
